FAERS Safety Report 9013990 (Version 1)
Quarter: 2013Q1

REPORT INFORMATION
  Report Type: Spontaneous
  Country: US (occurrence: None)
  Receive Date: 20130109
  Receipt Date: 20130109
  Transmission Date: 20140127
  Serious: Yes (Hospitalization)
  Sender: FDA-Public Use
  Company Number: None

PATIENT
  Age: 62 Year
  Sex: Female
  Weight: 82.6 kg

DRUGS (15)
  1. VICTOZA [Suspect]
     Indication: TYPE 2 DIABETES MELLITUS
     Dosage: 0.6 MG (0.6 MG, 1 IN 1 D) , SC INJECTION
     Route: 058
     Dates: start: 20121016, end: 20121106
  2. SUCROSE [Concomitant]
  3. FLUOXETINE HCL [Concomitant]
  4. GLIMEPIRIDE [Concomitant]
  5. GLUCOSAMINE/CHONDROITIN [Concomitant]
  6. LOSARTAN POTASSIUM/HYDROCHLOROTHIAZIDE [Concomitant]
  7. METFORMIN HCL [Concomitant]
  8. MULTIVITAMIN [Concomitant]
  9. OMEGA RED [Concomitant]
  10. OMEPRAZOLE [Concomitant]
  11. PRAVASTATIN SODIUM [Concomitant]
  12. PROBIOTIC [Concomitant]
  13. VITAMIN D [Concomitant]
  14. CRANBERRY [Concomitant]
  15. LORATADINE [Concomitant]

REACTIONS (15)
  - Alanine aminotransferase increased [None]
  - Aspartate aminotransferase increased [None]
  - Blood bilirubin increased [None]
  - Abdominal distension [None]
  - Constipation [None]
  - Nausea [None]
  - Dry mouth [None]
  - Vomiting [None]
  - Back pain [None]
  - Diarrhoea [None]
  - Blood pressure increased [None]
  - Diverticulitis [None]
  - Dehydration [None]
  - Cholelithiasis [None]
  - Ileus [None]
